FAERS Safety Report 6569424-0 (Version None)
Quarter: 2010Q1

REPORT INFORMATION
  Report Type: 
  Country: None (occurrence: None)
  Receive Date: 20100204
  Receipt Date: 20100126
  Transmission Date: 20100710
  Serious: Yes (Other)
  Sender: FDA-Public Use
  Company Number: DK-ALLERGAN-1001248US

PATIENT
  Sex: Female

DRUGS (4)
  1. CHLORAMPHENICOL [Suspect]
     Indication: INFECTION PROPHYLAXIS
     Dosage: UNK
     Route: 047
  2. BEVACIZUMAB [Suspect]
     Indication: MACULAR DEGENERATION
     Dosage: 1.25 MG, UNK
     Route: 031
  3. POVIDONE IODINE [Suspect]
  4. OXYBUPROCAINE [Suspect]
     Indication: ANAESTHESIA

REACTIONS (1)
  - EMBOLIC STROKE [None]
